FAERS Safety Report 16258716 (Version 2)
Quarter: 2021Q2

REPORT INFORMATION
  Report Type: Spontaneous
  Country: JP (occurrence: JP)
  Receive Date: 20190430
  Receipt Date: 20210622
  Transmission Date: 20210716
  Serious: Yes (Hospitalization)
  Sender: FDA-Public Use
  Company Number: JP-ROCHE-2308136

PATIENT
  Age: 73 Year
  Sex: Male

DRUGS (6)
  1. AVASTIN [Suspect]
     Active Substance: BEVACIZUMAB
     Indication: COLON CANCER
     Dosage: 7 COURSES,
     Route: 041
     Dates: start: 20170914, end: 20180126
  2. IRINOTECAN HYDROCHLORIDE. [Suspect]
     Active Substance: IRINOTECAN HYDROCHLORIDE
     Dosage: DOSAGE WAS UNCERTAIN
     Route: 041
  3. XELODA [Suspect]
     Active Substance: CAPECITABINE
     Indication: COLON CANCER
     Dosage: 7 COURSES
     Route: 048
     Dates: start: 20170914, end: 20180131
  4. IRINOTECAN HYDROCHLORIDE. [Suspect]
     Active Substance: IRINOTECAN HYDROCHLORIDE
     Indication: COLON CANCER
     Dosage: DOSAGE WAS UNCERTAIN. ?7 COURSES
     Route: 041
     Dates: start: 20170914
  5. XELODA [Suspect]
     Active Substance: CAPECITABINE
     Dosage: DOSAGE WAS UNCERTAIN
     Route: 048
  6. AVASTIN [Suspect]
     Active Substance: BEVACIZUMAB
     Dosage: DOSAGE WAS UNCERTAIN
     Route: 041

REACTIONS (2)
  - Ascites [Unknown]
  - Stomatitis [Recovered/Resolved]
